FAERS Safety Report 4596098-0 (Version None)
Quarter: 2005Q1

REPORT INFORMATION
  Report Type: 
  Country: None (occurrence: None)
  Receive Date: 20050228
  Receipt Date: 20050228
  Transmission Date: 20050727
  Serious: Yes (Death)
  Sender: FDA-Public Use
  Company Number: None

PATIENT
  Age: 67 Year
  Sex: Male
  Weight: 88.4514 kg

DRUGS (1)
  1. DEPAKOTE [Suspect]
     Indication: HICCUPS
     Dosage: 250 MG PO BID
     Route: 048
     Dates: start: 20040711

REACTIONS (5)
  - DISORIENTATION [None]
  - HEPATIC CIRRHOSIS [None]
  - HEPATIC FAILURE [None]
  - PORTAL VEIN THROMBOSIS [None]
  - SOMNOLENCE [None]
